FAERS Safety Report 10616482 (Version 1)
Quarter: 2014Q4

REPORT INFORMATION
  Report Type: Spontaneous
  Country: US (occurrence: US)
  Receive Date: 20141201
  Receipt Date: 20141201
  Transmission Date: 20150529
  Serious: Yes (Other)
  Sender: FDA-Public Use
  Company Number: US-BAYER-2014-174696

PATIENT
  Sex: Female

DRUGS (2)
  1. YAZ [Suspect]
     Active Substance: DROSPIRENONE\ETHINYL ESTRADIOL
     Dosage: UNK
     Route: 048
     Dates: end: 2010
  2. YASMIN [Suspect]
     Active Substance: DROSPIRENONE\ETHINYL ESTRADIOL
     Route: 048

REACTIONS (10)
  - Emotional distress [None]
  - Injury [None]
  - Depression [None]
  - Embolic cerebral infarction [None]
  - Hypertension [None]
  - Pain [None]
  - General physical health deterioration [None]
  - Cerebrovascular accident [None]
  - Deep vein thrombosis [None]
  - Anxiety [None]

NARRATIVE: CASE EVENT DATE: 20100120
